FAERS Safety Report 24981482 (Version 2)
Quarter: 2025Q1

REPORT INFORMATION
  Report Type: Spontaneous
  Country: US (occurrence: US)
  Receive Date: 20250218
  Receipt Date: 20250221
  Transmission Date: 20250408
  Serious: Yes (Other)
  Sender: PFIZER
  Company Number: US-PFIZER INC-202500034962

PATIENT
  Age: 51 Year
  Sex: Female

DRUGS (2)
  1. XELJANZ XR [Suspect]
     Active Substance: TOFACITINIB CITRATE
     Dosage: 11 MG, DAILY
     Route: 048
  2. XELJANZ XR [Suspect]
     Active Substance: TOFACITINIB CITRATE
     Dosage: 11 MG, DAILY (TAKE 11 MG TABLET ORAL DAILY)
     Route: 048
     Dates: start: 20240129

REACTIONS (7)
  - Abdominal abscess [Not Recovered/Not Resolved]
  - Diabetic foot infection [Not Recovered/Not Resolved]
  - Diabetic foot [Not Recovered/Not Resolved]
  - Herpes zoster [Recovered/Resolved]
  - Hypoaesthesia [Unknown]
  - Skin ulcer [Not Recovered/Not Resolved]
  - Infected skin ulcer [Not Recovered/Not Resolved]

NARRATIVE: CASE EVENT DATE: 20250101
